FAERS Safety Report 4402285-4 (Version None)
Quarter: 2004Q3

REPORT INFORMATION
  Report Type: 
  Country: None (occurrence: None)
  Receive Date: 20040720
  Receipt Date: 20040415
  Transmission Date: 20050211
  Serious: Yes (Death, Hospitalization, Other)
  Sender: FDA-Public Use
  Company Number: ZA-GLAXOSMITHKLINE-B0330195A

PATIENT
  Age: 51 Year
  Sex: Male

DRUGS (2)
  1. ZYBAN [Suspect]
     Indication: SMOKING CESSATION THERAPY
     Dosage: 150MG TWICE PER DAY
     Route: 048
     Dates: end: 20040101
  2. PROZAC [Suspect]
     Dosage: 20TABS PER DAY
     Route: 048

REACTIONS (4)
  - MYOCARDIAL INFARCTION [None]
  - OVERDOSE [None]
  - SOMNOLENCE [None]
  - SUDDEN DEATH [None]
